FAERS Safety Report 6236979-5 (Version None)
Quarter: 2009Q2

REPORT INFORMATION
  Report Type: 
  Country: None (occurrence: None)
  Receive Date: 20090619
  Receipt Date: 20090401
  Transmission Date: 20091009
  Serious: No
  Sender: FDA-Public Use
  Company Number: US-ASTRAZENECA-2009UW05976

PATIENT
  Age: 44 Year
  Sex: Female

DRUGS (1)
  1. SYMBICORT [Suspect]
     Indication: ASTHMA
     Dosage: 2 PUFFS TWICE DAILY (160UG/4.5 UG)
     Route: 055

REACTIONS (3)
  - ASTHMA [None]
  - DRUG INEFFECTIVE [None]
  - DYSPNOEA [None]
